FAERS Safety Report 8918153 (Version 1)
Quarter: 2012Q4

REPORT INFORMATION
  Report Type: 
  Country: CA (occurrence: CA)
  Receive Date: 20121120
  Receipt Date: 20121120
  Transmission Date: 20130627
  Serious: Yes (Other)
  Sender: FDA-Public Use
  Company Number: CA-TARO-2012P1064768

PATIENT
  Age: 47 Year
  Sex: Male

DRUGS (2)
  1. PHENYTOIN [Suspect]
  2. ISOSOURCE HN [Suspect]

REACTIONS (6)
  - Encephalopathy [Recovered/Resolved]
  - Hyperammonaemia [Recovering/Resolving]
  - Carnitine deficiency [Recovered/Resolved]
  - Blood albumin decreased [Unknown]
  - Toxicity to various agents [Recovered/Resolved]
  - Drug level above therapeutic [None]
